FAERS Safety Report 16484130 (Version 1)
Quarter: 2019Q3

REPORT INFORMATION
  Report Type: Spontaneous
  Country: US (occurrence: US)
  Receive Date: 20190625
  Receipt Date: 20190625
  Transmission Date: 20191004
  Serious: Yes (Disabling)
  Sender: FDA-Public Use
  Company Number: None

PATIENT
  Age: 55 Year
  Sex: Female
  Weight: 63.9 kg

DRUGS (12)
  1. MEDROXIPROGESTERONE [Concomitant]
     Active Substance: MEDROXYPROGESTERONE
  2. TRAMADOL. [Concomitant]
     Active Substance: TRAMADOL
  3. PRAZOSIN. [Concomitant]
     Active Substance: PRAZOSIN
  4. ALBUTEROL. [Concomitant]
     Active Substance: ALBUTEROL
  5. TRAZODONE [Concomitant]
     Active Substance: TRAZODONE HYDROCHLORIDE
  6. LEVOFLOXACIN 500MG TAKE ONE TABLET BY MOUTH EVERY DAY. [Suspect]
     Active Substance: LEVOFLOXACIN
     Indication: CHRONIC SINUSITIS
     Dosage: ?          QUANTITY:14 TABLET(S);?
     Route: 048
     Dates: start: 20190612, end: 20190619
  7. THYROID [Concomitant]
     Active Substance: LEVOTHYROXINE\LIOTHYRONINE
  8. LYRICA [Concomitant]
     Active Substance: PREGABALIN
  9. OMEPRAZOLE. [Concomitant]
     Active Substance: OMEPRAZOLE
  10. FLUTICASONE. [Concomitant]
     Active Substance: FLUTICASONE
  11. BUDESONIDE/FORMOTEROL [Concomitant]
     Active Substance: BUDESONIDE\FORMOTEROL
  12. ESTROGEN [Concomitant]
     Active Substance: ESTROGENS

REACTIONS (1)
  - Deafness unilateral [None]

NARRATIVE: CASE EVENT DATE: 20190619
